FAERS Safety Report 24365925 (Version 1)
Quarter: 2024Q3

REPORT INFORMATION
  Report Type: Spontaneous
  Country: US (occurrence: None)
  Receive Date: 20240925
  Receipt Date: 20240925
  Transmission Date: 20241016
  Serious: Yes (Other)
  Sender: Public
  Company Number: None

PATIENT
  Age: 76 Year
  Sex: Male

DRUGS (11)
  1. ERLEADA [Suspect]
     Active Substance: APALUTAMIDE
     Indication: Prostate cancer
     Dosage: FREQUENCY : DAILY;?
     Route: 048
     Dates: start: 20240508, end: 202408
  2. OZEMPIC [Concomitant]
  3. INSULIN LISPRO [Concomitant]
     Active Substance: INSULIN LISPRO
  4. LORAZEPAM [Concomitant]
     Active Substance: LORAZEPAM
  5. ALBUTEROL [Concomitant]
     Active Substance: ALBUTEROL
  6. AMLODIPINE [Concomitant]
     Active Substance: AMLODIPINE BESYLATE
  7. HYDROCHLOROTHIAZIDE [Concomitant]
     Active Substance: HYDROCHLOROTHIAZIDE
  8. LANTUS [Concomitant]
     Active Substance: INSULIN GLARGINE
  9. MYRBETRIQ [Concomitant]
     Active Substance: MIRABEGRON
  10. ROSUVASTATIN [Concomitant]
  11. LEVOTHYROXINE [Concomitant]

REACTIONS (6)
  - Pain in extremity [None]
  - Aphasia [None]
  - Arthralgia [None]
  - Gait inability [None]
  - Visual impairment [None]
  - Petit mal epilepsy [None]

NARRATIVE: CASE EVENT DATE: 20240501
